FAERS Safety Report 4839921-4 (Version None)
Quarter: 2005Q4

REPORT INFORMATION
  Report Type: 
  Country: None (occurrence: None)
  Receive Date: 20051129
  Receipt Date: 20050802
  Transmission Date: 20060501
  Serious: Yes (Other)
  Sender: FDA-Public Use
  Company Number: PHEH2005US08596

PATIENT
  Age: 57 Year
  Sex: Male

DRUGS (5)
  1. ZOMETA [Suspect]
     Indication: MULTIPLE MYELOMA
     Dosage: 4 MG, Q MONTH
     Route: 042
     Dates: start: 20020927
  2. OXYCONTIN [Concomitant]
  3. CELEBREX [Concomitant]
  4. THALOMID [Concomitant]
  5. VINCRISTINE [Suspect]

REACTIONS (4)
  - BONE DISORDER [None]
  - EXOSTOSIS [None]
  - FISTULA [None]
  - ORAL SOFT TISSUE DISORDER [None]
